FAERS Safety Report 4890977-2 (Version None)
Quarter: 2006Q1

REPORT INFORMATION
  Report Type: 
  Country: None (occurrence: None)
  Receive Date: 20060125
  Receipt Date: 20060118
  Transmission Date: 20060701
  Serious: Yes (Hospitalization, Other)
  Sender: FDA-Public Use
  Company Number: PHBS2006JP01070

PATIENT
  Age: 32 Year
  Sex: Male

DRUGS (5)
  1. PREDNISOLONE [Suspect]
     Indication: NEPHROTIC SYNDROME
     Dosage: 60 MG/D
     Route: 065
     Dates: start: 19990601
  2. CYCLOSPORINE [Suspect]
     Indication: NEPHROTIC SYNDROME
     Dosage: 125 MG/D
     Route: 065
  3. CYCLOSPORINE [Suspect]
     Dosage: 200 MG/D
     Route: 065
  4. CYCLOSPORINE [Suspect]
     Dosage: 225 MG/D
     Route: 065
  5. CYCLOSPORINE [Suspect]
     Dosage: 150 MG/D
     Route: 065

REACTIONS (16)
  - ABDOMINAL WALL ABSCESS [None]
  - CATARACT [None]
  - CELLULITIS [None]
  - CHOLESTASIS [None]
  - DIABETES MELLITUS [None]
  - DISEASE RECURRENCE [None]
  - DRUG ERUPTION [None]
  - HEPATIC FUNCTION ABNORMAL [None]
  - HYPERLIPIDAEMIA [None]
  - INFLAMMATION [None]
  - NASOPHARYNGITIS [None]
  - NEPHROPATHY [None]
  - NEPHROTIC SYNDROME [None]
  - ORAL CANDIDIASIS [None]
  - OSTEOPOROSIS [None]
  - PANCREATIC ABSCESS [None]
